FAERS Safety Report 10172840 (Version 2)
Quarter: 2014Q2

REPORT INFORMATION
  Report Type: Spontaneous
  Country: JP (occurrence: JP)
  Receive Date: 20140515
  Receipt Date: 20140604
  Transmission Date: 20141212
  Serious: Yes (Life-Threatening, Hospitalization)
  Sender: FDA-Public Use
  Company Number: JP-GLAXOSMITHKLINE-B0968863A

PATIENT
  Age: 43 Year
  Sex: Female

DRUGS (1)
  1. VOTRIENT 200MG [Suspect]
     Indication: UTERINE LEIOMYOSARCOMA
     Dosage: 800MG PER DAY
     Route: 048
     Dates: start: 20130806, end: 20140202

REACTIONS (8)
  - Gastrointestinal perforation [Not Recovered/Not Resolved]
  - Hair colour changes [Not Recovered/Not Resolved]
  - Hypertension [Recovering/Resolving]
  - Abdominal pain [Unknown]
  - Ascites [Unknown]
  - Peritonitis [Unknown]
  - Pyrexia [Unknown]
  - Abdominal rigidity [Unknown]
